FAERS Safety Report 15734235 (Version 1)
Quarter: 2018Q4

REPORT INFORMATION
  Report Type: Spontaneous
  Country: GR (occurrence: GR)
  Receive Date: 20181218
  Receipt Date: 20181218
  Transmission Date: 20190205
  Serious: Yes (Hospitalization)
  Sender: FDA-Public Use
  Company Number: GR-009507513-1812GRC007564

PATIENT
  Sex: Female

DRUGS (1)
  1. KEYTRUDA [Suspect]
     Active Substance: PEMBROLIZUMAB
     Indication: LUNG NEOPLASM MALIGNANT
     Dosage: UNK

REACTIONS (1)
  - Myalgia [Unknown]
